FAERS Safety Report 18851308 (Version 1)
Quarter: 2021Q1

REPORT INFORMATION
  Report Type: Spontaneous
  Country: NL (occurrence: NL)
  Receive Date: 20210205
  Receipt Date: 20210205
  Transmission Date: 20210420
  Serious: Yes (Disabling)
  Sender: FDA-Public Use
  Company Number: NL-TEVA-2021-NL-1876051

PATIENT
  Sex: Female

DRUGS (4)
  1. CALCIUMCARBONAAT KAUWTABLET 1,25G (500MG CA) / CALCI CHEW KAUWTABLET [Concomitant]
     Active Substance: CALCIUM CARBONATE
     Dosage: 1 DOSAGE FORMS DAILY; THERAPY END DATE : ASKED BUT UNKNOWN
     Dates: start: 20201120
  2. COLECALCIFEROL / BRAND NAME NOT SPECIFIED [Concomitant]
     Active Substance: CHOLECALCIFEROL
     Dosage: 10 GTT DAILY; THERAPY END DATE : ASKED BUT UNKNOWN
     Dates: start: 202009
  3. CYANOCOBALAMINE TABLET 1000UG / BRAND NAME NOT SPECIFIED [Concomitant]
     Active Substance: CYANOCOBALAMIN
     Dosage: 1 DOSAGE FORMS DAILY; THERAPY END DATE : ASKED BUT UNKNOWN
     Dates: start: 202008
  4. ALENDRONINEZUUR TABLET 10MG / ALENDRONINEZUUR PCH TABLET 10MG [Suspect]
     Active Substance: ALENDRONIC ACID
     Indication: OSTEOPOROSIS
     Dosage: 10 MILLIGRAM DAILY;
     Dates: start: 20201207, end: 20210105

REACTIONS (6)
  - Myalgia [Not Recovered/Not Resolved]
  - Feeling cold [Not Recovered/Not Resolved]
  - Dysphagia [Not Recovered/Not Resolved]
  - Bone pain [Not Recovered/Not Resolved]
  - Joint swelling [Not Recovered/Not Resolved]
  - Constipation [Not Recovered/Not Resolved]
